FAERS Safety Report 5166671-X (Version None)
Quarter: 2006Q4

REPORT INFORMATION
  Report Type: 
  Country: None (occurrence: None)
  Receive Date: 20061129
  Receipt Date: 20061116
  Transmission Date: 20070319
  Serious: Yes (Other)
  Sender: FDA-Public Use
  Company Number: 2006143962

PATIENT
  Age: 39 Year
  Sex: Female

DRUGS (1)
  1. LYRICA [Suspect]
     Indication: CANCER PAIN
     Dosage: 225 MG (2 IN 1 D)
     Dates: start: 20060601, end: 20060901

REACTIONS (2)
  - BREAST DISCHARGE [None]
  - SOMNOLENCE [None]
